FAERS Safety Report 7236364-3 (Version None)
Quarter: 2011Q1

REPORT INFORMATION
  Report Type: 
  Country: None (occurrence: None)
  Receive Date: 20110120
  Receipt Date: 20110111
  Transmission Date: 20110831
  Serious: Yes (Other)
  Sender: FDA-Public Use
  Company Number: US-JNJFOC-20100104759

PATIENT
  Sex: Female
  Weight: 76.2 kg

DRUGS (16)
  1. METOPROLOL [Concomitant]
     Indication: BLOOD PRESSURE
     Route: 048
  2. JANTOVEN [Concomitant]
     Indication: ANTICOAGULANT THERAPY
     Dosage: 2.5 OR 2.1
     Route: 048
  3. ENSURE [Concomitant]
  4. LIPITOR [Concomitant]
     Indication: BLOOD CHOLESTEROL
     Route: 048
  5. HYZAAR [Concomitant]
     Indication: BLOOD PRESSURE
     Dosage: 50-12.MG
     Route: 048
  6. COZAAR [Concomitant]
     Indication: BLOOD PRESSURE
     Route: 048
  7. ALBUTEROL [Concomitant]
     Dosage: 90MCG/2PUFFS
     Route: 055
  8. TYLENOL-500 [Suspect]
     Indication: ARTHRITIS
     Dosage: 2-3 TIMES DAILY AS NEEDED FOR 2 YEARS THEN INCREASED TO 4 TIMES, THEN DECREASED TO 1 CAPLET 4 TIMES
     Route: 048
  9. ALENDRONATE SODIUM [Concomitant]
     Indication: BONE DENSITY ABNORMAL
     Route: 048
  10. CENTRUM SILVER [Concomitant]
     Route: 048
  11. TYLENOL-500 [Suspect]
     Route: 048
  12. QVAR 40 [Concomitant]
     Dosage: 80MCG/2 PUFFS
     Route: 048
  13. TRAMADOL [Concomitant]
  14. LANOXIN [Concomitant]
     Indication: CARDIAC DISORDER
     Dosage: 250MCG
     Route: 048
  15. LEVOXYL [Concomitant]
     Indication: THYROID DISORDER
     Dosage: 100MCG
     Route: 048
  16. PROTONIX [Concomitant]
     Route: 048

REACTIONS (5)
  - WEIGHT DECREASED [None]
  - NAUSEA [None]
  - GASTROINTESTINAL PAIN [None]
  - PRODUCT QUALITY ISSUE [None]
  - DIARRHOEA [None]
